FAERS Safety Report 8899942 (Version 1)
Quarter: 2012Q4

REPORT INFORMATION
  Report Type: 
  Country: GB (occurrence: GB)
  Receive Date: 20121109
  Receipt Date: 20121109
  Transmission Date: 20130627
  Serious: Yes (Other)
  Sender: FDA-Public Use
  Company Number: PHHY2012GB102557

PATIENT
  Age: 70 Year
  Sex: Male
  Weight: 80 kg

DRUGS (3)
  1. AMLODIPINE [Suspect]
     Indication: HYPERTENSION
     Dosage: 5 mg
     Route: 048
     Dates: start: 20120309, end: 201209
  2. SIMVASTATIN [Concomitant]
     Dosage: 20 mg
     Route: 048
     Dates: start: 20110805
  3. LORATADINE [Concomitant]
     Dosage: 10 mg
     Route: 048
     Dates: start: 2008

REACTIONS (2)
  - Mouth ulceration [Recovered/Resolved]
  - Mastication disorder [Recovered/Resolved]
